FAERS Safety Report 16597502 (Version 1)
Quarter: 2019Q3

REPORT INFORMATION
  Report Type: Spontaneous
  Country: US (occurrence: US)
  Receive Date: 20190718
  Receipt Date: 20190718
  Transmission Date: 20191004
  Serious: No
  Sender: FDA-Public Use
  Company Number: None

PATIENT
  Age: 73 Year
  Sex: Male

DRUGS (1)
  1. AMPHETAMINE/DEXTROAMPHETAMINE [Suspect]
     Active Substance: AMPHETAMINE\DEXTROAMPHETAMINE
     Route: 048
     Dates: start: 20190710, end: 20190718

REACTIONS (3)
  - Product substitution issue [None]
  - Somnolence [None]
  - Therapeutic product effect decreased [None]

NARRATIVE: CASE EVENT DATE: 20190710
